FAERS Safety Report 7818982-4 (Version None)
Quarter: 2011Q4

REPORT INFORMATION
  Report Type: 
  Country: None (occurrence: None)
  Receive Date: 20111012
  Receipt Date: 20111003
  Transmission Date: 20120403
  Serious: Yes (Life-Threatening, Hospitalization)
  Sender: FDA-Public Use
  Company Number: AUR-APL-2011-05324

PATIENT
  Age: 33 Year
  Sex: Male
  Weight: 84 kg

DRUGS (4)
  1. SIMVASTATIN [Suspect]
     Indication: BLOOD CHOLESTEROL INCREASED
     Dosage: (40 MG),ORAL
     Route: 048
     Dates: start: 20101124, end: 20101203
  2. HYDROXYZINE [Suspect]
     Indication: PRURITUS
     Dosage: 10 MG (10 MG,1 IN 1 D)
     Dates: end: 20101201
  3. OLANZAPINE [Suspect]
     Indication: SCHIZOPHRENIA
     Dosage: 20 MG (20 MG,1 IN 1 D),ORAL
     Route: 048
  4. TRIMETHOPRIM [Suspect]
     Indication: ACNE
     Dosage: 400 MG (200 MG,2 IN 1 D),ORAL
     Route: 048
     Dates: end: 20101201

REACTIONS (4)
  - MENTAL DISORDER [None]
  - RHABDOMYOLYSIS [None]
  - BLOOD PRESSURE ABNORMAL [None]
  - AUTONOMIC NERVOUS SYSTEM IMBALANCE [None]
